FAERS Safety Report 17144711 (Version 1)
Quarter: 2019Q4

REPORT INFORMATION
  Report Type: Spontaneous
  Country: SE (occurrence: SE)
  Receive Date: 20191212
  Receipt Date: 20191212
  Transmission Date: 20200122
  Serious: Yes (Hospitalization)
  Sender: FDA-Public Use
  Company Number: SE-PFIZER INC-2019534665

PATIENT
  Sex: Female

DRUGS (5)
  1. MELATONIN [Suspect]
     Active Substance: MELATONIN
     Dosage: 28 MG, UNK
     Route: 048
     Dates: start: 20181010, end: 20181010
  2. PROPAVAN [Suspect]
     Active Substance: PROPIOMAZINE
     Dosage: 175 MG, UNK
     Route: 048
     Dates: start: 20181010, end: 20181010
  3. LERGIGAN [PROMETHAZINE HYDROCHLORIDE] [Suspect]
     Active Substance: PROMETHAZINE HYDROCHLORIDE
     Dosage: 350 MG, UNK
     Route: 048
     Dates: start: 20181010, end: 20181010
  4. VENLAFAXINE HCL [Suspect]
     Active Substance: VENLAFAXINE HYDROCHLORIDE
     Dosage: UNK (3, UNKNOWN STRENGTH)
     Route: 048
     Dates: start: 20181010, end: 20181010
  5. SERTRALINE HCL [Suspect]
     Active Substance: SERTRALINE HYDROCHLORIDE
     Dosage: UNK (3, UNKNOWN STRENGTH)
     Route: 048
     Dates: start: 20181010, end: 20181010

REACTIONS (2)
  - Intentional overdose [Unknown]
  - Intentional self-injury [Unknown]

NARRATIVE: CASE EVENT DATE: 20181010
